FAERS Safety Report 14475431 (Version 2)
Quarter: 2018Q3

REPORT INFORMATION
  Report Type: Spontaneous
  Country: PT (occurrence: PT)
  Receive Date: 20180201
  Receipt Date: 20180710
  Transmission Date: 20181010
  Serious: Yes (Life-Threatening, Hospitalization, Congenital Anomaly, Other)
  Sender: FDA-Public Use
  Company Number: PT-ASTRAZENECA-2018SE12961

PATIENT
  Age: 27 Week
  Sex: Female

DRUGS (7)
  1. OMEPRAZOL [Suspect]
     Active Substance: OMEPRAZOLE
     Indication: PRODUCT USED FOR UNKNOWN INDICATION
     Dosage: UNK
     Route: 064
  2. PREDNISONE. [Suspect]
     Active Substance: PREDNISONE
     Indication: PRODUCT USED FOR UNKNOWN INDICATION
     Dosage: UNK
     Route: 064
  3. EMTRICITABINE + TENOFOVIR [Suspect]
     Active Substance: EMTRICITABINE\TENOFOVIR
     Indication: HIV INFECTION
     Route: 064
  4. METHYLDOPA. [Suspect]
     Active Substance: METHYLDOPA
     Indication: PRODUCT USED FOR UNKNOWN INDICATION
     Dosage: UNK
     Route: 064
  5. VALGANCICLOVIR. [Suspect]
     Active Substance: VALGANCICLOVIR
     Indication: HIV INFECTION
     Dosage: UNK
     Route: 064
  6. CALCIUM FOLINATE [Suspect]
     Active Substance: LEUCOVORIN CALCIUM
     Indication: PRODUCT USED FOR UNKNOWN INDICATION
     Dosage: UNK
     Route: 064
  7. COTRIMOXAZOLE [Suspect]
     Active Substance: SULFAMETHOXAZOLE\TRIMETHOPRIM
     Indication: PRODUCT USED FOR UNKNOWN INDICATION
     Dosage: UNK
     Route: 064

REACTIONS (4)
  - Premature baby [Unknown]
  - Oesophageal atresia [Not Recovered/Not Resolved]
  - Foetal exposure during pregnancy [Unknown]
  - Teratogenicity [Not Recovered/Not Resolved]
